FAERS Safety Report 12286823 (Version 1)
Quarter: 2016Q2

REPORT INFORMATION
  Report Type: Spontaneous
  Country: None (occurrence: None)
  Receive Date: 20160419
  Receipt Date: 20160419
  Transmission Date: 20160815
  Serious: No
  Sender: FDA-Public Use
  Company Number: None

PATIENT
  Age: 28 Year
  Sex: Female

DRUGS (1)
  1. LUPRON DEPOT [Suspect]
     Active Substance: LEUPROLIDE ACETATE
     Indication: ENDOMETRIOSIS
     Dosage: 11.25MG Q3MONTHS IM
     Route: 030
     Dates: start: 20160111

REACTIONS (3)
  - Haemorrhage [None]
  - Weight increased [None]
  - Hot flush [None]

NARRATIVE: CASE EVENT DATE: 20160418
